FAERS Safety Report 6738976-X (Version None)
Quarter: 2010Q2

REPORT INFORMATION
  Report Type: 
  Country: None (occurrence: None)
  Receive Date: 20100521
  Receipt Date: 20100505
  Transmission Date: 20101027
  Serious: Yes (Hospitalization)
  Sender: FDA-Public Use
  Company Number: A-US2009-26523

PATIENT
  Age: 53 Year
  Sex: Female

DRUGS (6)
  1. TRACLEER [Suspect]
     Indication: PULMONARY ARTERIAL HYPERTENSION
     Dosage: ORAL
     Route: 048
     Dates: start: 20030813
  2. EPOPROSTENOL [Concomitant]
  3. REVATIO [Concomitant]
  4. COUMADIN [Concomitant]
  5. OXYGEN [Concomitant]
  6. DOPAMINE HCL [Concomitant]

REACTIONS (3)
  - DEPRESSION [None]
  - DEVICE RELATED INFECTION [None]
  - PULMONARY HYPERTENSION [None]
